FAERS Safety Report 14598541 (Version 1)
Quarter: 2018Q1

REPORT INFORMATION
  Report Type: Spontaneous
  Country: US (occurrence: US)
  Receive Date: 20180302
  Receipt Date: 20180302
  Transmission Date: 20180509
  Serious: Yes (Hospitalization)
  Sender: FDA-Public Use
  Company Number: None

PATIENT
  Age: 63 Year
  Sex: Male

DRUGS (1)
  1. ATORVASTATIN [Suspect]
     Active Substance: ATORVASTATIN
     Indication: HYPERLIPIDAEMIA
     Dates: start: 20171209, end: 20180105

REACTIONS (5)
  - Blood creatine phosphokinase increased [None]
  - Jaundice [None]
  - Thrombocytopenia [None]
  - Myalgia [None]
  - Hepatic enzyme increased [None]

NARRATIVE: CASE EVENT DATE: 20180105
